FAERS Safety Report 6566685-9 (Version None)
Quarter: 2010Q1

REPORT INFORMATION
  Report Type: 
  Country: None (occurrence: None)
  Receive Date: 20100202
  Receipt Date: 20100127
  Transmission Date: 20100710
  Serious: Yes (Death)
  Sender: FDA-Public Use
  Company Number: ES-ROCHE-682158

PATIENT
  Age: 54 Year
  Sex: Male

DRUGS (2)
  1. XELODA [Suspect]
     Dosage: DOSE: 3.6 GR
     Route: 048
     Dates: start: 20090415, end: 20090427
  2. HIBOR [Suspect]
     Route: 058
     Dates: start: 20090408, end: 20090502

REACTIONS (4)
  - BONE MARROW FAILURE [None]
  - HAEMORRHAGE INTRACRANIAL [None]
  - MUCOSAL INFLAMMATION [None]
  - THROMBOCYTOPENIA [None]
